FAERS Safety Report 23056436 (Version 2)
Quarter: 2023Q4

REPORT INFORMATION
  Report Type: Spontaneous
  Country: JP (occurrence: JP)
  Receive Date: 20231011
  Receipt Date: 20231019
  Transmission Date: 20240110
  Serious: Yes (Other)
  Sender: FDA-Public Use
  Company Number: JP-ABBVIE-5445997

PATIENT
  Age: 60 Year
  Sex: Male

DRUGS (2)
  1. SILODOSIN [Suspect]
     Active Substance: SILODOSIN
     Indication: Dysuria
     Route: 048
     Dates: start: 20230920
  2. SILODOSIN [Suspect]
     Active Substance: SILODOSIN
     Indication: Dysuria
     Route: 048
     Dates: start: 20230923

REACTIONS (1)
  - Haemoglobin decreased [Recovered/Resolved]

NARRATIVE: CASE EVENT DATE: 20231002
